FAERS Safety Report 8550379-4 (Version None)
Quarter: 2012Q3

REPORT INFORMATION
  Report Type: 
  Country: None (occurrence: None)
  Receive Date: 20120730
  Receipt Date: 20120716
  Transmission Date: 20120928
  Serious: Yes (Other)
  Sender: FDA-Public Use
  Company Number: US-ELI_LILLY_AND_COMPANY-US201207005674

PATIENT
  Sex: Female

DRUGS (2)
  1. LEVEMIR [Concomitant]
  2. HUMALOG [Suspect]
     Indication: TYPE 1 DIABETES MELLITUS
     Dosage: UNK

REACTIONS (4)
  - DRUG INEFFECTIVE [None]
  - FURUNCLE [None]
  - HYPERGLYCAEMIA [None]
  - BLINDNESS [None]
